FAERS Safety Report 19848518 (Version 1)
Quarter: 2021Q3

REPORT INFORMATION
  Report Type: Spontaneous
  Country: US (occurrence: US)
  Receive Date: 20210918
  Receipt Date: 20210918
  Transmission Date: 20211014
  Serious: No
  Sender: FDA-Public Use
  Company Number: US-BION-009441

PATIENT
  Sex: Female
  Weight: 68.04 kg

DRUGS (1)
  1. ZYRTEC [Suspect]
     Active Substance: CETIRIZINE HYDROCHLORIDE
     Indication: DUST ALLERGY
     Dosage: EVERYDAY, ONCE A DAY
     Route: 048
     Dates: end: 20210129

REACTIONS (2)
  - Product substitution issue [Unknown]
  - Drug ineffective [Not Recovered/Not Resolved]
